FAERS Safety Report 8934516 (Version 1)
Quarter: 2012Q4

REPORT INFORMATION
  Report Type: 
  Country: US (occurrence: US)
  Receive Date: 20121129
  Receipt Date: 20121129
  Transmission Date: 20130627
  Serious: No
  Sender: FDA-Public Use
  Company Number: US-GLAXOSMITHKLINE-A0967939A

PATIENT
  Age: 69 Year
  Sex: Female

DRUGS (3)
  1. FLOVENT [Suspect]
     Indication: DYSPNOEA
     Dosage: 1PUFF Twice per day
     Route: 055
     Dates: start: 20120224
  2. PROVENTIL [Concomitant]
  3. DEXILANT [Concomitant]

REACTIONS (3)
  - Aphonia [Not Recovered/Not Resolved]
  - Oropharyngeal pain [Unknown]
  - Drug ineffective [Unknown]
